FAERS Safety Report 14025503 (Version 2)
Quarter: 2018Q2

REPORT INFORMATION
  Report Type: Spontaneous
  Country: US (occurrence: US)
  Receive Date: 20170929
  Receipt Date: 20180612
  Transmission Date: 20180711
  Serious: Yes (Hospitalization, Other)
  Sender: FDA-Public Use
  Company Number: US-GLAXOSMITHKLINE-US2017GSK150712

PATIENT
  Sex: Female
  Weight: 57.14 kg

DRUGS (2)
  1. PREVACID [Suspect]
     Active Substance: LANSOPRAZOLE
     Indication: DYSPEPSIA
  2. PREVACID [Suspect]
     Active Substance: LANSOPRAZOLE
     Indication: PEPTIC ULCER
     Dosage: 40 MG, BID
     Route: 065
     Dates: start: 200908, end: 201006

REACTIONS (13)
  - Pain [Unknown]
  - Schizophrenia [Unknown]
  - Acute kidney injury [Unknown]
  - Nausea [Unknown]
  - Chronic kidney disease [Unknown]
  - Anxiety [Unknown]
  - Depression [Unknown]
  - Decreased appetite [Unknown]
  - Stress [Unknown]
  - Insomnia [Unknown]
  - Blood potassium decreased [Unknown]
  - Hypotension [Unknown]
  - Bipolar disorder [Unknown]
